FAERS Safety Report 13537653 (Version 3)
Quarter: 2017Q2

REPORT INFORMATION
  Report Type: Spontaneous
  Country: ES (occurrence: ES)
  Receive Date: 20170511
  Receipt Date: 20170621
  Transmission Date: 20170830
  Serious: Yes (Other)
  Sender: FDA-Public Use
  Company Number: ALCN2017ES003173

PATIENT
  Age: 45 Year
  Sex: Male
  Weight: 71 kg

DRUGS (2)
  1. DUOTRAV APS [Suspect]
     Active Substance: TIMOLOL MALEATE\TRAVOPROST
     Indication: GLAUCOMA
     Dosage: 1 GTT, QD (NIGHT)
     Route: 047
     Dates: start: 201409
  2. TIMABAK 0.5% [Suspect]
     Active Substance: TIMOLOL MALEATE
     Indication: GLAUCOMA
     Dosage: (MORNING)
     Route: 047
     Dates: start: 201703

REACTIONS (9)
  - Eyelid oedema [Recovering/Resolving]
  - Ocular hyperaemia [Recovering/Resolving]
  - Ciliary hyperaemia [Recovering/Resolving]
  - Punctate keratitis [Recovering/Resolving]
  - Foreign body sensation in eyes [Recovering/Resolving]
  - Eye irritation [Recovering/Resolving]
  - Dry eye [Recovering/Resolving]
  - Eye pain [Recovering/Resolving]
  - Erythema of eyelid [Recovering/Resolving]

NARRATIVE: CASE EVENT DATE: 20170501
